FAERS Safety Report 6083627-3 (Version None)
Quarter: 2009Q1

REPORT INFORMATION
  Report Type: 
  Country: None (occurrence: None)
  Receive Date: 20090219
  Receipt Date: 20090210
  Transmission Date: 20090719
  Serious: Yes (Other)
  Sender: FDA-Public Use
  Company Number: FI-ASTRAZENECA-2009SE00765

PATIENT
  Age: 31 Year
  Sex: Female

DRUGS (1)
  1. SEROQUEL [Suspect]
     Route: 048

REACTIONS (7)
  - CHEST DISCOMFORT [None]
  - CHEST PAIN [None]
  - DYSKINESIA [None]
  - MEDICATION ERROR [None]
  - PRURITUS [None]
  - SWOLLEN TONGUE [None]
  - URTICARIA VESICULOSA [None]
